FAERS Safety Report 7808000-6 (Version None)
Quarter: 2011Q4

REPORT INFORMATION
  Report Type: 
  Country: None (occurrence: None)
  Receive Date: 20111011
  Receipt Date: 20111011
  Transmission Date: 20120403
  Serious: Yes (Hospitalization)
  Sender: FDA-Public Use
  Company Number: None

PATIENT
  Age: 20 Year
  Sex: Female
  Weight: 70 kg

DRUGS (2)
  1. FLEBOGAMMA [Concomitant]
     Dosage: 30G
     Route: 041
     Dates: start: 20110930, end: 20110930
  2. FLEBOGAMMA [Suspect]
     Indication: CHRONIC INFLAMMATORY DEMYELINATING POLYRADICULONEUROPATHY
     Dosage: 30G
     Route: 041
     Dates: start: 20110725, end: 20110725

REACTIONS (3)
  - PHOTOPHOBIA [None]
  - PYREXIA [None]
  - HEADACHE [None]
